FAERS Safety Report 9681251 (Version 2)
Quarter: 2013Q4

REPORT INFORMATION
  Report Type: Spontaneous
  Country: FR (occurrence: FR)
  Receive Date: 20131111
  Receipt Date: 20131111
  Transmission Date: 20140711
  Serious: Yes (Hospitalization)
  Sender: FDA-Public Use
  Company Number: FR-B.I. PHARMACEUTICALS,INC./RIDGEFIELD-2013-FF-02517FF

PATIENT
  Age: 80 Year
  Sex: Female
  Weight: 65 kg

DRUGS (5)
  1. PRADAXA [Suspect]
     Indication: ATRIAL FIBRILLATION
     Dosage: 220 MG
     Route: 048
     Dates: start: 2013
  2. ATENOLOL [Concomitant]
     Dosage: 25 MG
  3. DEPAKINE CHRONO [Concomitant]
     Dosage: 500 MG
  4. FUROSEMIDE [Concomitant]
     Dosage: 20 MG
  5. HEMIGOXINE [Concomitant]

REACTIONS (3)
  - Melaena [Recovered/Resolved]
  - Intestinal polyp [Recovered/Resolved]
  - Hiatus hernia [Unknown]
